FAERS Safety Report 10640832 (Version 1)
Quarter: 2014Q4

REPORT INFORMATION
  Report Type: Report from Study
  Country: AU (occurrence: AU)
  Receive Date: 20141209
  Receipt Date: 20141209
  Transmission Date: 20150529
  Serious: Yes (Other)
  Sender: FDA-Public Use
  Company Number: AU-SA-2014SA166017

PATIENT
  Sex: Female

DRUGS (3)
  1. NOVORAPID [Suspect]
     Active Substance: INSULIN ASPART
     Dosage: DOSE:100 UNIT(S)
     Route: 065
     Dates: start: 2006
  2. LANTUS [Suspect]
     Active Substance: INSULIN GLARGINE
     Dosage: DOSE:80 UNIT(S)
     Route: 065
     Dates: start: 20110101
  3. LANTUS [Suspect]
     Active Substance: INSULIN GLARGINE
     Dosage: 70 UNITS (20 UNITS IN MORNING AND 50 UNITS AT NIGHT)
     Route: 065

REACTIONS (10)
  - Abortion spontaneous [Unknown]
  - Fatigue [Not Recovered/Not Resolved]
  - Wrong technique in drug usage process [Unknown]
  - Diabetes mellitus inadequate control [Recovered/Resolved]
  - Exposure during pregnancy [Unknown]
  - Autoimmune thyroiditis [Not Recovered/Not Resolved]
  - Heart rate increased [Not Recovered/Not Resolved]
  - Cardiac failure [Not Recovered/Not Resolved]
  - Incorrect dose administered [Unknown]
  - Off label use [Unknown]

NARRATIVE: CASE EVENT DATE: 201301
